FAERS Safety Report 11954835 (Version 1)
Quarter: 2016Q1

REPORT INFORMATION
  Report Type: Report from Study
  Country: US (occurrence: US)
  Receive Date: 20160126
  Receipt Date: 20160126
  Transmission Date: 20160526
  Serious: No
  Sender: FDA-Public Use
  Company Number: US-ABBVIE-15K-163-1365493-00

PATIENT
  Age: 12 Year
  Sex: Male

DRUGS (5)
  1. HUMIRA [Suspect]
     Active Substance: ADALIMUMAB
     Indication: CROHN^S DISEASE
     Dosage: LOADING DOSE
     Route: 058
     Dates: start: 20150320, end: 20150320
  2. ATARAX [Concomitant]
     Active Substance: HYDROXYZINE\HYDROXYZINE HYDROCHLORIDE
     Indication: INJECTION SITE REACTION
     Route: 048
     Dates: start: 20150401
  3. HUMIRA [Suspect]
     Active Substance: ADALIMUMAB
     Route: 058
     Dates: start: 20150404, end: 20150626
  4. HUMIRA [Suspect]
     Active Substance: ADALIMUMAB
     Route: 058
     Dates: start: 2015, end: 2015
  5. ZOFRAN [Concomitant]
     Active Substance: ONDANSETRON HYDROCHLORIDE
     Indication: PRODUCT USED FOR UNKNOWN INDICATION
     Route: 048

REACTIONS (23)
  - Diarrhoea [Not Recovered/Not Resolved]
  - Rash macular [Unknown]
  - Nausea [Unknown]
  - Arthralgia [Not Recovered/Not Resolved]
  - Pruritus [Unknown]
  - Abdominal pain upper [Not Recovered/Not Resolved]
  - Injection site pain [Recovered/Resolved]
  - Oropharyngeal pain [Unknown]
  - Injection site pain [Unknown]
  - Cough [Unknown]
  - Injection site pruritus [Recovered/Resolved]
  - Injection site pruritus [Unknown]
  - Diphtheria [Not Recovered/Not Resolved]
  - Erythema [Unknown]
  - Injection site pruritus [Recovered/Resolved]
  - Body temperature increased [Unknown]
  - Injection site swelling [Recovered/Resolved]
  - Injection site papule [Recovered/Resolved]
  - Liver function test abnormal [Not Recovered/Not Resolved]
  - Oropharyngeal pain [Not Recovered/Not Resolved]
  - Injection site papule [Recovered/Resolved]
  - Abdominal tenderness [Not Recovered/Not Resolved]
  - Injection site discolouration [Recovered/Resolved]

NARRATIVE: CASE EVENT DATE: 2015
